FAERS Safety Report 8769852 (Version 1)
Quarter: 2012Q4

REPORT INFORMATION
  Report Type: Report from Study
  Country: JP (occurrence: JP)
  Receive Date: 20120905
  Receipt Date: 20120905
  Transmission Date: 20130627
  Serious: Yes (Hospitalization)
  Sender: FDA-Public Use
  Company Number: JP-MERCK-2012SP010164

PATIENT

DRUGS (6)
  1. PEGINTERFERON ALFA-2B [Suspect]
     Indication: HEPATITIS C
     Dosage: 1.5 ?g/kg, QW
     Route: 058
     Dates: start: 20120207
  2. REBETOL [Suspect]
     Indication: HEPATITIS C
     Dosage: 600 mg, QD
     Route: 048
     Dates: start: 20120207
  3. TELAVIC [Suspect]
     Indication: HEPATITIS C
     Dosage: 2250 mg, QD
     Route: 048
     Dates: start: 20120207, end: 20120209
  4. SILECE [Concomitant]
     Indication: INSOMNIA
     Dosage: 4 mg, QD
     Route: 048
     Dates: end: 20120220
  5. ERIMIN [Concomitant]
     Indication: INSOMNIA
     Dosage: 6 mg, QD
     Route: 048
     Dates: end: 20120213
  6. ERIMIN [Concomitant]
     Dosage: 9 mg, qd
     Route: 048
     Dates: start: 20120228

REACTIONS (1)
  - Rash pruritic [Recovered/Resolved]
